FAERS Safety Report 9547729 (Version 1)
Quarter: 2013Q2

REPORT INFORMATION
  Report Type: Spontaneous
  Country: US (occurrence: None)
  Receive Date: 20130606
  Receipt Date: 20130606
  Transmission Date: 20140414
  Serious: No
  Sender: FDA-Public Use
  Company Number: 1302USA010929

PATIENT
  Age: 57 Year
  Sex: Female

DRUGS (4)
  1. ZIOPTAN (TAFLUPROST) EYE DROPS, SOLUTION [Suspect]
     Indication: GLAUCOMA
     Route: 047
     Dates: start: 201208, end: 201208
  2. TIMOPTIC (TIMOLOL MALEATE) [Concomitant]
  3. ALPHAGAN (BRIMONIDINE TARTRATE) (BRIMONIDINE TARTRATE) [Concomitant]
  4. CENESTIN (ESTROGENS, CONJUGATED) [Concomitant]

REACTIONS (2)
  - Eye irritation [None]
  - Hypersensitivity [None]
